FAERS Safety Report 19058669 (Version 2)
Quarter: 2021Q2

REPORT INFORMATION
  Report Type: Spontaneous
  Country: US (occurrence: US)
  Receive Date: 20210325
  Receipt Date: 20210406
  Transmission Date: 20210717
  Serious: No
  Sender: FDA-Public Use
  Company Number: US-BAYER-2021-111544

PATIENT
  Age: 27 Year
  Sex: Female

DRUGS (1)
  1. MIRENA [Suspect]
     Active Substance: LEVONORGESTREL
     Indication: CONTRACEPTION
     Dosage: 20 ?G PER DAY CONTINUOUSLY
     Route: 015
     Dates: start: 20210316

REACTIONS (4)
  - Device deployment issue [None]
  - Post procedural discomfort [Not Recovered/Not Resolved]
  - Device expulsion [Not Recovered/Not Resolved]
  - Device defective [None]

NARRATIVE: CASE EVENT DATE: 20210316
